FAERS Safety Report 5411714-9 (Version None)
Quarter: 2007Q3

REPORT INFORMATION
  Report Type: 
  Country: None (occurrence: None)
  Receive Date: 20070811
  Receipt Date: 20070803
  Transmission Date: 20080115
  Serious: Yes (Hospitalization)
  Sender: FDA-Public Use
  Company Number: US-BAXTER-2007BH006813

PATIENT
  Age: 56 Year
  Sex: Male

DRUGS (4)
  1. DIANEAL [Suspect]
     Indication: RENAL FAILURE CHRONIC
     Route: 033
     Dates: start: 20061214
  2. DIANEAL [Suspect]
     Indication: RENAL FAILURE CHRONIC
     Route: 033
     Dates: start: 20061214
  3. XANAX [Concomitant]
     Indication: ANXIETY
     Route: 048
  4. PAXIL [Concomitant]
     Indication: ANXIETY
     Route: 048

REACTIONS (2)
  - ANXIETY [None]
  - AZOTAEMIA [None]
